FAERS Safety Report 5314664-1 (Version None)
Quarter: 2007Q2

REPORT INFORMATION
  Report Type: 
  Country: None (occurrence: None)
  Receive Date: 20070427
  Receipt Date: 20070416
  Transmission Date: 20071010
  Serious: Yes (Hospitalization)
  Sender: FDA-Public Use
  Company Number: TPG2007A00306

PATIENT
  Age: 77 Year
  Sex: Female

DRUGS (5)
  1. ACTOS [Suspect]
     Indication: DIABETES MELLITUS NON-INSULIN-DEPENDENT
     Dosage: 15 MG (15 MG, 1 IN 1 D) PER ORAL
     Route: 048
     Dates: start: 20030627
  2. GLIMEPIRIDE [Concomitant]
  3. MICARDIS PLUS (HYDROCHLOROTHIAZIDE, TELMISARTAN) [Concomitant]
  4. SIMVABETA (SIMVASTATIN) [Concomitant]
  5. ATENOLOL [Concomitant]

REACTIONS (1)
  - RADIUS FRACTURE [None]
